FAERS Safety Report 18591160 (Version 1)
Quarter: 2020Q4

REPORT INFORMATION
  Report Type: Spontaneous
  Country: JP (occurrence: JP)
  Receive Date: 20201208
  Receipt Date: 20201208
  Transmission Date: 20210114
  Serious: Yes (Other)
  Sender: FDA-Public Use
  Company Number: JP-PFIZER INC-2020477175

PATIENT
  Age: 51 Year
  Sex: Male

DRUGS (1)
  1. BESPONSA [Suspect]
     Active Substance: INOTUZUMAB OZOGAMICIN
     Dosage: UNK, CYCLIC

REACTIONS (5)
  - Platelet count decreased [Unknown]
  - Cytokine release syndrome [Unknown]
  - Anaemia [Unknown]
  - Neutropenia [Unknown]
  - Venoocclusive liver disease [Unknown]
